FAERS Safety Report 5201413-0 (Version None)
Quarter: 2007Q1

REPORT INFORMATION
  Report Type: 
  Country: None (occurrence: None)
  Receive Date: 20070108
  Receipt Date: 20070102
  Transmission Date: 20070707
  Serious: Yes (Hospitalization)
  Sender: FDA-Public Use
  Company Number: AU-PURDUE-USA_2007_0026102

PATIENT
  Age: 75 Year
  Sex: Male

DRUGS (19)
  1. OXYCODONE HCL [Suspect]
     Indication: DRUG USE FOR UNKNOWN INDICATION
     Dosage: 5 MG, PRN
     Route: 048
  2. OMEPRAZOLE [Suspect]
     Indication: DRUG USE FOR UNKNOWN INDICATION
     Dosage: 20 MG, UNK
     Route: 048
     Dates: start: 20061106, end: 20061113
  3. IRBESARTAN [Suspect]
     Indication: DRUG USE FOR UNKNOWN INDICATION
     Route: 048
     Dates: end: 20061108
  4. IRBESARTAN [Suspect]
     Dosage: 75 MG, UNK
     Route: 048
     Dates: start: 20061113
  5. ALENDRONATE SODIUM [Suspect]
     Indication: DRUG USE FOR UNKNOWN INDICATION
     Dosage: 10 MG, UNK
     Route: 048
     Dates: start: 20061106
  6. HYDROCHLOROTHIAZIDE [Suspect]
     Indication: DRUG USE FOR UNKNOWN INDICATION
     Route: 048
     Dates: end: 20061108
  7. FOLIC ACID [Suspect]
     Indication: DRUG USE FOR UNKNOWN INDICATION
     Dosage: 5 MG, UNK
     Route: 048
  8. INSULIN [Concomitant]
     Indication: DRUG USE FOR UNKNOWN INDICATION
  9. VITAMIN D3 [Concomitant]
  10. CARVEDILOL [Concomitant]
  11. MAGNESIUM [Concomitant]
  12. SIMVASTATIN [Concomitant]
  13. ACETAMINOPHEN [Concomitant]
  14. COLOXYL WITH SENNA [Concomitant]
  15. CALCIUM [Concomitant]
  16. FRUSEMIDE [Concomitant]
     Dates: end: 20061108
  17. GLICLAZIDE [Concomitant]
     Dates: end: 20061108
  18. SPIRONOLACTONE [Concomitant]
     Dosage: UNK, UNK
     Dates: end: 20061108
  19. ASPIRIN [Concomitant]

REACTIONS (3)
  - BLOOD CREATININE INCREASED [None]
  - HYPERKALAEMIA [None]
  - RENAL IMPAIRMENT [None]
